FAERS Safety Report 5211364-3 (Version None)
Quarter: 2006Q4

REPORT INFORMATION
  Report Type: 
  Country: None (occurrence: None)
  Receive Date: 20061130
  Receipt Date: 20060809
  Transmission Date: 20070319
  Serious: Yes (Other)
  Sender: FDA-Public Use
  Company Number: WAES 0608USA03507

PATIENT
  Age: 84 Year
  Sex: Female

DRUGS (6)
  1. FOSAMAX [Suspect]
     Dosage: PO
     Route: 048
     Dates: end: 20060601
  2. OCUVITE LUTEIN [Concomitant]
  3. ASCORBIC ACID [Concomitant]
  4. HYDROCODONE BITARTRATE [Concomitant]
  5. VERAPAMIL HYDROCHLORIDE [Concomitant]
  6. VITAMIN E [Concomitant]

REACTIONS (1)
  - OSTEONECROSIS [None]
